FAERS Safety Report 8397407 (Version 2)
Quarter: 2013Q1

REPORT INFORMATION
  Report Type: Report from Study
  Country: PL (occurrence: PL)
  Receive Date: 20120209
  Receipt Date: 20130107
  Transmission Date: 20140127
  Serious: Yes (Hospitalization)
  Sender: FDA-Public Use
  Company Number: PL-SANOFI-AVENTIS-2012SA007513

PATIENT
  Age: 68 Year
  Sex: Female

DRUGS (9)
  1. DOCETAXEL [Suspect]
     Indication: BREAST CANCER METASTATIC
     Dosage: FORM: CONCENTRATE FOR SOLUTION
     Route: 042
     Dates: start: 20110722, end: 20111222
  2. TRASTUZUMAB [Suspect]
     Indication: BREAST CANCER METASTATIC
     Route: 042
     Dates: start: 20110722
  3. FUROSEMIDE [Concomitant]
     Dates: start: 20111217
  4. SPIRONOLACTONE [Concomitant]
     Dates: start: 20111217
  5. RAMIPRIL [Concomitant]
     Dates: start: 20111217
  6. BISOPROLOL [Concomitant]
     Dates: start: 20111217
  7. ANASTROZOLE [Concomitant]
  8. CYCLOPHOSPHAMIDE [Concomitant]
  9. DOXORUBICIN [Concomitant]

REACTIONS (1)
  - Right ventricular dysfunction [Recovered/Resolved]
